FAERS Safety Report 14689946 (Version 1)
Quarter: 2018Q1

REPORT INFORMATION
  Report Type: Spontaneous
  Country: US (occurrence: US)
  Receive Date: 20180328
  Receipt Date: 20180328
  Transmission Date: 20180509
  Serious: Yes (Other)
  Sender: FDA-Public Use
  Company Number: US-MYLANLABS-2018M1017822

PATIENT
  Age: 59 Year
  Sex: Female
  Weight: 92 kg

DRUGS (7)
  1. PREDNISONE. [Suspect]
     Active Substance: PREDNISONE
     Indication: ADRENAL INSUFFICIENCY
  2. BENADRYL [Suspect]
     Active Substance: DIPHENHYDRAMINE HYDROCHLORIDE
     Indication: ANAPHYLACTIC REACTION
     Dosage: UNK UNK, BID
     Route: 048
  3. ALBUTEROL SULFATE. [Suspect]
     Active Substance: ALBUTEROL SULFATE
     Indication: ANAPHYLACTIC REACTION
     Dosage: UNK UNK, BID
     Route: 055
  4. ALLEGRA [Concomitant]
     Active Substance: FEXOFENADINE HYDROCHLORIDE
     Indication: PRODUCT USED FOR UNKNOWN INDICATION
     Dosage: UNK, BID
  5. RANITIDINE. [Concomitant]
     Active Substance: RANITIDINE
     Indication: PRODUCT USED FOR UNKNOWN INDICATION
     Dosage: UNK, BID
  6. PREDNISONE. [Suspect]
     Active Substance: PREDNISONE
     Indication: ANAPHYLACTIC REACTION
     Dosage: 5 MG, QD
     Route: 048
  7. EPINEPHRINE INJECTION USP AUTO-INJECTOR [Suspect]
     Active Substance: EPINEPHRINE
     Indication: ANAPHYLACTIC REACTION
     Dosage: 1 UNK, UNK
     Route: 030
     Dates: start: 20180310

REACTIONS (4)
  - Drug effect decreased [Recovered/Resolved]
  - Drug effect delayed [Recovered/Resolved]
  - Device failure [Recovered/Resolved]
  - Incorrect dose administered [Recovered/Resolved]

NARRATIVE: CASE EVENT DATE: 20180310
